FAERS Safety Report 24020763 (Version 1)
Quarter: 2024Q2

REPORT INFORMATION
  Report Type: Spontaneous
  Country: US (occurrence: None)
  Receive Date: 20240627
  Receipt Date: 20240627
  Transmission Date: 20240716
  Serious: Yes (unspecified)
  Sender: FDA-Public Use
  Company Number: None

PATIENT
  Sex: 0

DRUGS (1)
  1. FERRLECIT [Suspect]
     Active Substance: SODIUM FERRIC GLUCONATE COMPLEX
     Route: 041

REACTIONS (5)
  - Pain in extremity [None]
  - Urticaria [None]
  - Erythema [None]
  - Pruritus [None]
  - Blood pressure decreased [None]
